FAERS Safety Report 7838380-7 (Version None)
Quarter: 2011Q4

REPORT INFORMATION
  Report Type: 
  Country: None (occurrence: None)
  Receive Date: 20111024
  Receipt Date: 20111011
  Transmission Date: 20120403
  Serious: Yes (Hospitalization)
  Sender: FDA-Public Use
  Company Number: US-GILEAD-2010-0029175

PATIENT

DRUGS (6)
  1. TENOFOVIR DISOPROXIL FUMARATE [Suspect]
     Route: 048
     Dates: start: 20100304, end: 20100401
  2. CLOTRIMAZOLE VAG PESSARIES [Concomitant]
  3. NORGESTREL/ETHINYL ESTRADIOL [Concomitant]
     Indication: CONTRACEPTION
  4. ACETAMINOPHEN [Concomitant]
     Indication: MALAISE
  5. METRONIDAZOLE [Concomitant]
     Indication: ABDOMINAL PAIN
  6. OMEPRAZOLE [Concomitant]
     Indication: PEPTIC ULCER

REACTIONS (1)
  - ABORTION SPONTANEOUS [None]
